FAERS Safety Report 4461602-X (Version None)
Quarter: 2004Q3

REPORT INFORMATION
  Report Type: 
  Country: None (occurrence: None)
  Receive Date: 20040924
  Receipt Date: 20040924
  Transmission Date: 20050211
  Serious: No
  Sender: FDA-Public Use
  Company Number: None

PATIENT
  Age: 42 Year
  Sex: Female
  Weight: 75 kg

DRUGS (2)
  1. OXALIPLATIN  68.4 MG  SANOFI [Suspect]
     Indication: COLORECTAL CANCER
     Dosage: 68.4 MG X 1   PERFUSION   INTRA-ARTERI
     Route: 013
     Dates: start: 20040921, end: 20040921
  2. OXALIPLATIN  68.4 MG  SANOFI [Suspect]
     Indication: METASTASES TO LIVER
     Dosage: 68.4 MG X 1   PERFUSION   INTRA-ARTERI
     Route: 013
     Dates: start: 20040921, end: 20040921

REACTIONS (1)
  - BLOOD GLUCOSE INCREASED [None]
